FAERS Safety Report 11356421 (Version 1)
Quarter: 2015Q3

REPORT INFORMATION
  Report Type: Spontaneous
  Country: FI (occurrence: FI)
  Receive Date: 20150807
  Receipt Date: 20150807
  Transmission Date: 20151125
  Serious: Yes (Hospitalization, Other)
  Sender: FDA-Public Use
  Company Number: FI-JNJFOC-20150721570

PATIENT
  Sex: Male

DRUGS (5)
  1. DUROGESIC 100 MICROGRAMS/HOUR (16.8MG/42 CM2) [Suspect]
     Active Substance: FENTANYL
     Indication: PAIN
     Route: 062
  2. DIAZEPAM. [Concomitant]
     Active Substance: DIAZEPAM
     Indication: PRODUCT USED FOR UNKNOWN INDICATION
     Route: 065
  3. SIRDALUD [Concomitant]
     Active Substance: TIZANIDINE
     Indication: PRODUCT USED FOR UNKNOWN INDICATION
     Route: 065
  4. OMEPRAZOLE. [Concomitant]
     Active Substance: OMEPRAZOLE
     Indication: PRODUCT USED FOR UNKNOWN INDICATION
     Route: 065
  5. IRON [Concomitant]
     Active Substance: IRON
     Indication: PRODUCT USED FOR UNKNOWN INDICATION
     Route: 065

REACTIONS (13)
  - Application site erythema [Unknown]
  - Hyperhidrosis [Unknown]
  - Fracture [Unknown]
  - Road traffic accident [Unknown]
  - Meningitis [Unknown]
  - Leukaemia [Unknown]
  - Coma [Unknown]
  - Vomiting [Unknown]
  - Hip arthroplasty [Unknown]
  - Sepsis [Unknown]
  - Product quality issue [None]
  - Osteonecrosis [Unknown]
  - Dialysis [None]

NARRATIVE: CASE EVENT DATE: 20150627
